FAERS Safety Report 7747808-2 (Version None)
Quarter: 2011Q3

REPORT INFORMATION
  Report Type: 
  Country: None (occurrence: None)
  Receive Date: 20110909
  Receipt Date: 20110826
  Transmission Date: 20111222
  Serious: No
  Sender: FDA-Public Use
  Company Number: SPI201100216

PATIENT
  Age: 26 Year
  Sex: Female

DRUGS (4)
  1. AMITIZA [Suspect]
     Indication: CONSTIPATION
     Dosage: 24 MCG, BID, ORAL; 24 MCG, QD, ORAL
     Route: 048
     Dates: start: 20110705, end: 20110101
  2. METAMUCIL(PSYLLIUM HDROPHILIC MUCILOID) [Concomitant]
  3. NUVARING [Concomitant]
  4. FIBER-LAX (POLYCARBOPHIL CALCIUM) [Concomitant]

REACTIONS (3)
  - NAUSEA [None]
  - COUGH [None]
  - DYSPNOEA [None]
